FAERS Safety Report 10803517 (Version 1)
Quarter: 2015Q1

REPORT INFORMATION
  Report Type: Spontaneous
  Country: US (occurrence: US)
  Receive Date: 20150217
  Receipt Date: 20150217
  Transmission Date: 20150721
  Serious: No
  Sender: FDA-Public Use
  Company Number: US-GLAXOSMITHKLINE-US2015013403

PATIENT
  Age: 12 Year
  Sex: Male

DRUGS (1)
  1. ABREVA [Suspect]
     Active Substance: DOCOSANOL
     Indication: ORAL HERPES
     Dosage: UNK
     Route: 061
     Dates: start: 20150125, end: 20150130

REACTIONS (2)
  - Oral herpes [Recovering/Resolving]
  - Drug administration error [Recovered/Resolved]

NARRATIVE: CASE EVENT DATE: 20150125
